FAERS Safety Report 8777920 (Version 2)
Quarter: 2013Q4

REPORT INFORMATION
  Report Type: Spontaneous
  Country: US (occurrence: US)
  Receive Date: 20120911
  Receipt Date: 20131101
  Transmission Date: 20140711
  Serious: No
  Sender: FDA-Public Use
  Company Number: US-009507513-1208USA012473

PATIENT
  Sex: Male

DRUGS (4)
  1. VICTRELIS [Suspect]
     Indication: HEPATITIS C
     Dosage: 4 DF, TID
     Route: 048
     Dates: start: 20120522
  2. VICTRELIS [Suspect]
     Indication: HEPATITIS C
     Dosage: 1 DF, QD
     Route: 048
  3. RIBASPHERE [Suspect]
     Dosage: UNK, BID
  4. PEGASYS [Suspect]

REACTIONS (2)
  - Anaemia [Unknown]
  - Fatigue [Unknown]
